FAERS Safety Report 15616625 (Version 9)
Quarter: 2019Q3

REPORT INFORMATION
  Report Type: Spontaneous
  Country: GB (occurrence: GB)
  Receive Date: 20181114
  Receipt Date: 20190716
  Transmission Date: 20191004
  Serious: Yes (Hospitalization, Other)
  Sender: FDA-Public Use
  Company Number: GB-PFIZER INC-2018464588

PATIENT
  Age: 54 Year
  Sex: Male

DRUGS (11)
  1. LORAZEPAM. [Suspect]
     Active Substance: LORAZEPAM
     Indication: BIPOLAR DISORDER
     Dosage: UNK
     Dates: start: 2013, end: 2013
  2. CLOZARIL [Suspect]
     Active Substance: CLOZAPINE
     Indication: BIPOLAR DISORDER
     Dosage: UNK
     Route: 048
     Dates: start: 20181025
  3. CLOZARIL [Suspect]
     Active Substance: CLOZAPINE
     Indication: SCHIZOPHRENIA
     Dosage: UNK (TABLET)
     Route: 048
     Dates: start: 20131119, end: 20180727
  4. LITHIUM. [Suspect]
     Active Substance: LITHIUM
     Indication: BIPOLAR DISORDER
     Dosage: UNK
     Dates: start: 2013
  5. HALOPERIDOL. [Suspect]
     Active Substance: HALOPERIDOL
     Indication: BIPOLAR DISORDER
     Dosage: UNK
     Dates: start: 2013
  6. HALOPERIDOL. [Suspect]
     Active Substance: HALOPERIDOL
     Dosage: 20 MG, 1X/DAY (20 MG, QD)
     Dates: start: 2018, end: 2018
  7. CLOZARIL [Suspect]
     Active Substance: CLOZAPINE
     Dosage: UNK
     Route: 048
     Dates: start: 20181029
  8. DEPAKOTE [Concomitant]
     Active Substance: DIVALPROEX SODIUM
     Dosage: 1 G, 1X/DAY (QD)
     Dates: start: 2018
  9. CLONAZEPAM. [Concomitant]
     Active Substance: CLONAZEPAM
     Dosage: 1.5 MG, 1X/DAY (QD)
     Dates: start: 2018
  10. HALOPERIDOL. [Suspect]
     Active Substance: HALOPERIDOL
     Dosage: UNK
     Dates: start: 201807
  11. LITHIUM. [Suspect]
     Active Substance: LITHIUM
     Dosage: 400 MG, 1X/DAY (400 MG, QD)
     Dates: start: 2018, end: 2018

REACTIONS (8)
  - Platelet count increased [Recovering/Resolving]
  - Schizophrenia [Unknown]
  - Disease recurrence [Unknown]
  - Neutropenia [Recovered/Resolved]
  - Off label use [Unknown]
  - White blood cell count decreased [Recovered/Resolved with Sequelae]
  - Drug ineffective for unapproved indication [Unknown]
  - Haemoglobin decreased [Recovering/Resolving]

NARRATIVE: CASE EVENT DATE: 20180629
